FAERS Safety Report 19948484 (Version 1)
Quarter: 2021Q4

REPORT INFORMATION
  Report Type: Report from Study
  Country: CA (occurrence: CA)
  Receive Date: 20211012
  Receipt Date: 20211012
  Transmission Date: 20220303
  Serious: Yes (Other)
  Sender: FDA-Public Use
  Company Number: CA-CANTON LABORATORIES, LLC-2120473

PATIENT
  Age: 60 Year
  Sex: Female

DRUGS (34)
  1. NAPROSYN [Suspect]
     Active Substance: NAPROXEN
     Indication: Product used for unknown indication
     Route: 048
  2. ATENOLOL [Suspect]
     Active Substance: ATENOLOL
  3. PROPRANOLOL [Suspect]
     Active Substance: PROPRANOLOL HYDROCHLORIDE
  4. CANDESARTAN [Suspect]
     Active Substance: CANDESARTAN
     Route: 048
  5. PROPRANOLOL [Suspect]
     Active Substance: PROPRANOLOL HYDROCHLORIDE
  6. AIMOVIG [Suspect]
     Active Substance: ERENUMAB-AOOE
  7. AMLODIPINE [Suspect]
     Active Substance: AMLODIPINE BESYLATE
  8. CLONIDINE [Suspect]
     Active Substance: CLONIDINE
  9. CORGARD [Suspect]
     Active Substance: NADOLOL
  10. DESYREL [Suspect]
     Active Substance: TRAZODONE HYDROCHLORIDE
  11. DIHYDROERGOTAMINE MESYLATE [Suspect]
     Active Substance: DIHYDROERGOTAMINE MESYLATE
  12. GABAPENTIN [Suspect]
     Active Substance: GABAPENTIN
  13. LAMICTAL [Suspect]
     Active Substance: LAMOTRIGINE
  14. MAXALT [Suspect]
     Active Substance: RIZATRIPTAN BENZOATE
  15. METOCLOPRAMIDE HYDROCHLORIDE [Suspect]
     Active Substance: METOCLOPRAMIDE HYDROCHLORIDE
  16. NARATRIPTAN HYDROCHLORIDE [Suspect]
     Active Substance: NARATRIPTAN HYDROCHLORIDE
  17. NIFEDIPINE [Suspect]
     Active Substance: NIFEDIPINE
  18. NORTRIPTYLINE HYDROCHLORIDE [Suspect]
     Active Substance: NORTRIPTYLINE HYDROCHLORIDE
  19. PIZOTYLINE MALEATE [Suspect]
     Active Substance: PIZOTYLINE MALEATE
  20. PREDNISONE [Suspect]
     Active Substance: PREDNISONE
  21. PROCHLORPERAZINE [Suspect]
     Active Substance: PROCHLORPERAZINE
  22. TOPAMAX [Suspect]
     Active Substance: TOPIRAMATE
     Route: 065
  23. VALPROATE SODIUM [Suspect]
     Active Substance: VALPROATE SODIUM
  24. VENLAFAXINE HYDROCHLORIDE [Suspect]
     Active Substance: VENLAFAXINE HYDROCHLORIDE
  25. VERAPAMIL HCL [Suspect]
     Active Substance: VERAPAMIL HYDROCHLORIDE
  26. ZOPICLONE [Suspect]
     Active Substance: ZOPICLONE
  27. BOTULINUM TOXIN TYPE A [Concomitant]
     Active Substance: BOTULINUM TOXIN TYPE A
  28. ELAVIL [Concomitant]
     Active Substance: AMITRIPTYLINE HYDROCHLORIDE
  29. FROVATRIPTAN SUCCINATE [Concomitant]
     Active Substance: FROVATRIPTAN SUCCINATE
  30. GRAVOL [Concomitant]
     Active Substance: DIMENHYDRINATE
  31. VALPROATE SODIUM [Concomitant]
     Active Substance: VALPROATE SODIUM
  32. TENORMIN [Suspect]
     Active Substance: ATENOLOL
  33. TYLENOL [Concomitant]
     Active Substance: ACETAMINOPHEN
  34. ALLOPURINOL [Concomitant]
     Active Substance: ALLOPURINOL

REACTIONS (18)
  - Abdominal pain [Unknown]
  - Extrapyramidal disorder [Unknown]
  - Migraine [Unknown]
  - Neovascularisation [Unknown]
  - Weight decreased [Unknown]
  - Paradoxical drug reaction [Unknown]
  - Anuria [Unknown]
  - Cough [Unknown]
  - Diarrhoea [Unknown]
  - Dyspepsia [Unknown]
  - Dyspnoea [Unknown]
  - Nausea [Unknown]
  - Drug ineffective [Unknown]
  - Treatment failure [Unknown]
  - Drug ineffective for unapproved indication [Unknown]
  - Off label use [Unknown]
  - Product use in unapproved indication [Unknown]
  - Product use issue [Unknown]
